FAERS Safety Report 25156086 (Version 1)
Quarter: 2025Q2

REPORT INFORMATION
  Report Type: Spontaneous
  Country: ES (occurrence: ES)
  Receive Date: 20250403
  Receipt Date: 20250403
  Transmission Date: 20250717
  Serious: Yes (Death)
  Sender: TEVA
  Company Number: None

PATIENT
  Sex: Female

DRUGS (7)
  1. QUETIAPINE [Suspect]
     Active Substance: QUETIAPINE
     Indication: Product used for unknown indication
     Route: 065
     Dates: start: 20231201
  2. VENLAFAXINE HYDROCHLORIDE [Concomitant]
     Active Substance: VENLAFAXINE HYDROCHLORIDE
     Indication: Product used for unknown indication
     Dosage: EXTENDED-RELEASE TABLETS 30 TABLETS
     Route: 048
     Dates: start: 202310
  3. LATUDA [Suspect]
     Active Substance: LURASIDONE HYDROCHLORIDE
     Indication: Personality disorder
     Dosage: 28 TABLETS
     Route: 048
     Dates: start: 202310
  4. RIVOTRIL [Concomitant]
     Active Substance: CLONAZEPAM
     Indication: Anxiety
     Route: 048
     Dates: start: 20230811
  5. ESTRADIOL [Concomitant]
     Active Substance: ESTRADIOL
     Indication: Transgender hormonal therapy
     Dosage: 4 DOSES EVERY 24 HOURS,LENZETTO 1.53 MG/DOSE 1 BOTTLE OF 6.5 ML (56 SPRAYS)
     Route: 061
     Dates: start: 20240226
  6. CLONIDINE [Concomitant]
     Active Substance: CLONIDINE
     Indication: Tourette^s disorder
     Dosage: 0.5 TABLETS EVERY 8 HOURS, CATAPRESAN, 30 TABLETS
     Route: 048
     Dates: start: 20240209
  7. TRILEPTAL [Suspect]
     Active Substance: OXCARBAZEPINE
     Indication: Personality disorder
     Dosage: , 100 TABLETS
     Route: 065
     Dates: start: 20241216

REACTIONS (2)
  - Cardio-respiratory arrest [Fatal]
  - Epilepsy [Fatal]

NARRATIVE: CASE EVENT DATE: 20250312
